FAERS Safety Report 13983869 (Version 2)
Quarter: 2017Q4

REPORT INFORMATION
  Report Type: Spontaneous
  Country: US (occurrence: US)
  Receive Date: 20170918
  Receipt Date: 20171019
  Transmission Date: 20180321
  Serious: Yes (Hospitalization, Other)
  Sender: FDA-Public Use
  Company Number: US-ASTELLAS-2017US036145

PATIENT
  Age: 87 Year
  Sex: Male

DRUGS (1)
  1. XTANDI [Suspect]
     Active Substance: ENZALUTAMIDE
     Indication: NEOPLASM PROSTATE
     Route: 048
     Dates: start: 20150923

REACTIONS (6)
  - Haematuria [Unknown]
  - Prostatomegaly [Unknown]
  - Transurethral prostatectomy [Unknown]
  - Calculus bladder [Unknown]
  - Cystoscopy [Unknown]
  - Bladder calculus removal [Unknown]
